FAERS Safety Report 14331793 (Version 1)
Quarter: 2017Q4

REPORT INFORMATION
  Report Type: Spontaneous
  Country: TR (occurrence: TR)
  Receive Date: 20171228
  Receipt Date: 20171228
  Transmission Date: 20180321
  Serious: Yes (Hospitalization)
  Sender: FDA-Public Use
  Company Number: PHHY2017TR193076

PATIENT
  Age: 6 Year
  Sex: Female

DRUGS (4)
  1. EYESTIL [Concomitant]
     Active Substance: HYALURONATE SODIUM
     Indication: POSTOPERATIVE CARE
     Dosage: UNK UNK, Q3H
     Route: 047
     Dates: start: 20171124
  2. MAXIDEX [Suspect]
     Active Substance: DEXAMETHASONE
     Indication: POSTOPERATIVE CARE
     Dosage: UNK UNK, Q3H FOR 7 DAYS
     Route: 047
     Dates: start: 20171124
  3. MAXIDEX [Suspect]
     Active Substance: DEXAMETHASONE
     Dosage: UNK UNK, Q2H FOR 3 DAYS
     Route: 047
  4. EYESTIL [Concomitant]
     Active Substance: HYALURONATE SODIUM
     Dosage: UNK UNK, Q2H
     Route: 047

REACTIONS (4)
  - Eyelid oedema [Unknown]
  - Suture rupture [Not Recovered/Not Resolved]
  - Injury [Unknown]
  - Postoperative wound complication [Not Recovered/Not Resolved]
